FAERS Safety Report 12971183 (Version 2)
Quarter: 2016Q4

REPORT INFORMATION
  Report Type: Spontaneous
  Country: US (occurrence: US)
  Receive Date: 20161123
  Receipt Date: 20161128
  Transmission Date: 20170207
  Serious: No
  Sender: FDA-Public Use
  Company Number: US-JAZZ-2016-US-019147

PATIENT
  Age: 75 Year
  Sex: Male

DRUGS (23)
  1. XYREM [Suspect]
     Active Substance: SODIUM OXYBATE
     Indication: INSOMNIA
     Dosage: 2.25 G, BID
     Route: 048
     Dates: start: 201609
  2. ALLERGY RELIEF                     /00072502/ [Concomitant]
  3. METOPROLOL SUCC CT [Concomitant]
  4. SYNTHROID [Concomitant]
     Active Substance: LEVOTHYROXINE SODIUM
  5. CALCIUM [Concomitant]
     Active Substance: CALCIUM
  6. OSTEO BI-FLEX                      /01431201/ [Concomitant]
  7. PRIMIDONE. [Concomitant]
     Active Substance: PRIMIDONE
  8. FLOMAX [Concomitant]
     Active Substance: TAMSULOSIN HYDROCHLORIDE
  9. ONE DAILY                          /01824901/ [Concomitant]
  10. SEROQUEL [Concomitant]
     Active Substance: QUETIAPINE FUMARATE
  11. AVODART [Concomitant]
     Active Substance: DUTASTERIDE
  12. SAW PALMETTO                       /00833501/ [Concomitant]
     Active Substance: SAW PALMETTO
  13. TAMSULOSIN HCL [Concomitant]
     Active Substance: TAMSULOSIN
  14. BELSOMRA [Concomitant]
     Active Substance: SUVOREXANT
  15. XARELTO [Concomitant]
     Active Substance: RIVAROXABAN
  16. ADVAIR HFA [Concomitant]
     Active Substance: FLUTICASONE PROPIONATE\SALMETEROL XINAFOATE
  17. RANEXA [Concomitant]
     Active Substance: RANOLAZINE
  18. TYLENOL PM EXTRA STRENGTH [Concomitant]
     Active Substance: ACETAMINOPHEN\DIPHENHYDRAMINE HYDROCHLORIDE
  19. KLONOPIN [Concomitant]
     Active Substance: CLONAZEPAM
  20. LIPITOR [Concomitant]
     Active Substance: ATORVASTATIN CALCIUM
  21. TRIAZOLAM. [Concomitant]
     Active Substance: TRIAZOLAM
  22. BUTRANS [Concomitant]
     Active Substance: BUPRENORPHINE
  23. VIIBRYD [Concomitant]
     Active Substance: VILAZODONE HYDROCHLORIDE

REACTIONS (1)
  - Incorrect dose administered [Unknown]

NARRATIVE: CASE EVENT DATE: 201609
